FAERS Safety Report 7516829-7 (Version None)
Quarter: 2011Q2

REPORT INFORMATION
  Report Type: 
  Country: None (occurrence: None)
  Receive Date: 20110523
  Receipt Date: 20110510
  Transmission Date: 20111010
  Serious: Yes (Disabling, Other)
  Sender: FDA-Public Use
  Company Number: ACO_24158_2011

PATIENT
  Age: 55 Year
  Sex: Female
  Weight: 72.6 kg

DRUGS (7)
  1. AMBIEN [Concomitant]
  2. FLUOXETINE [Concomitant]
  3. IBUPROFEN [Concomitant]
  4. BACLOFEN [Concomitant]
  5. GABAPENTIN [Concomitant]
  6. AMPYRA [Suspect]
     Indication: MOVEMENT DISORDER
     Dosage: 10 MG, BID
     Dates: start: 20110506, end: 20110510
  7. AMPYRA [Suspect]
     Indication: DYSSTASIA
     Dosage: 10 MG, BID
     Dates: start: 20110506, end: 20110510

REACTIONS (3)
  - MUSCLE SPASTICITY [None]
  - MUSCLE SPASMS [None]
  - HYPOAESTHESIA [None]
